FAERS Safety Report 23527051 (Version 1)
Quarter: 2024Q1

REPORT INFORMATION
  Report Type: Spontaneous
  Country: US (occurrence: None)
  Receive Date: 20240215
  Receipt Date: 20240215
  Transmission Date: 20240409
  Serious: Yes (Hospitalization)
  Sender: FDA-Public Use
  Company Number: None

PATIENT
  Age: 63 Year
  Sex: Male
  Weight: 124.1 kg

DRUGS (1)
  1. CISPLATIN [Suspect]
     Active Substance: CISPLATIN
     Dates: end: 20190520

REACTIONS (6)
  - Cellulitis [None]
  - Night sweats [None]
  - Escherichia infection [None]
  - Pulmonary mass [None]
  - Disease progression [None]
  - Oedema [None]

NARRATIVE: CASE EVENT DATE: 20191024
